FAERS Safety Report 9166013 (Version 1)
Quarter: 2013Q1

REPORT INFORMATION
  Report Type: Spontaneous
  Country: FR (occurrence: FR)
  Receive Date: 20130315
  Receipt Date: 20130315
  Transmission Date: 20140127
  Serious: Yes (Life-Threatening, Hospitalization)
  Sender: FDA-Public Use
  Company Number: FR-GLAXOSMITHKLINE-B0873128A

PATIENT
  Age: 68 Year
  Sex: Male

DRUGS (11)
  1. ZELITREX [Suspect]
     Indication: PRODUCT USED FOR UNKNOWN INDICATION
     Dosage: 1000MG PER DAY
     Route: 048
     Dates: start: 20130126, end: 20130211
  2. ZYLORIC [Suspect]
     Indication: PRODUCT USED FOR UNKNOWN INDICATION
     Dosage: 300MG PER DAY
     Route: 048
     Dates: start: 20130126, end: 20130211
  3. BACTRIM FORTE [Suspect]
     Indication: PRODUCT USED FOR UNKNOWN INDICATION
     Dosage: 1TAB ALTERNATE DAYS
     Route: 048
     Dates: start: 20130126, end: 20130211
  4. RITUXIMAB [Concomitant]
     Indication: CHEMOTHERAPY
     Dosage: 1G SINGLE DOSE
     Dates: start: 20130125, end: 20130125
  5. FLUDARA [Concomitant]
     Indication: CHEMOTHERAPY
     Dosage: 80MG PER DAY
     Dates: start: 20130126, end: 20130128
  6. ENDOXAN [Concomitant]
     Indication: CHEMOTHERAPY
     Dosage: 500MG PER DAY
     Dates: start: 20130126, end: 20130128
  7. ZOPHREN [Concomitant]
     Indication: PREMEDICATION
  8. EMEND [Concomitant]
     Indication: PREMEDICATION
  9. SOLUPRED [Concomitant]
     Indication: PREMEDICATION
  10. AUGMENTIN [Concomitant]
     Indication: PYREXIA
     Dates: start: 20130209
  11. CIFLOX [Concomitant]
     Indication: PYREXIA
     Dates: start: 20130209

REACTIONS (3)
  - Toxic skin eruption [Recovered/Resolved]
  - Pyrexia [Recovered/Resolved]
  - Rash morbilliform [Recovered/Resolved]
